FAERS Safety Report 7250757-X (Version None)
Quarter: 2011Q1

REPORT INFORMATION
  Report Type: 
  Country: None (occurrence: None)
  Receive Date: 20110119
  Receipt Date: 20110119
  Transmission Date: 20110831
  Serious: Yes (Other)
  Sender: FDA-Public Use
  Company Number: 1022556-2011-00002

PATIENT
  Age: 85 Year
  Sex: Male
  Weight: 72.1219 kg

DRUGS (3)
  1. ANTIHYPERTENSIVES [Concomitant]
  2. ICY HOT ARM, NECK, LEG PATCH 5 CT [Suspect]
     Indication: MYALGIA
     Dosage: TOPICAL (ONCE FOR 8 HOURS)
     Route: 061
  3. WARFARIN [Concomitant]

REACTIONS (2)
  - SKIN INJURY [None]
  - SKIN HAEMORRHAGE [None]
